FAERS Safety Report 13195494 (Version 2)
Quarter: 2017Q1

REPORT INFORMATION
  Report Type: Spontaneous
  Country: IR (occurrence: IR)
  Receive Date: 20170208
  Receipt Date: 20170222
  Transmission Date: 20170428
  Serious: Yes (Death, Life-Threatening, Hospitalization, Other)
  Sender: FDA-Public Use
  Company Number: IR-MACLEODS PHARMACEUTICALS US LTD-MAC2017004296

PATIENT

DRUGS (2)
  1. DIAZEPAM. [Suspect]
     Active Substance: DIAZEPAM
     Indication: GENERALISED TONIC-CLONIC SEIZURE
     Dosage: 10 MG, UNK
     Route: 042
     Dates: start: 201603
  2. TRAMADOL HYDROCHLORIDE. [Suspect]
     Active Substance: TRAMADOL HYDROCHLORIDE
     Indication: SUICIDE ATTEMPT
     Dosage: 10 G,(50 TAB,200MG)UNK
     Route: 048
     Dates: start: 201603

REACTIONS (10)
  - Toxicity to various agents [Fatal]
  - Generalised tonic-clonic seizure [Fatal]
  - Hypotonia [Fatal]
  - Pupil fixed [Fatal]
  - Areflexia [Fatal]
  - Cardio-respiratory arrest [Fatal]
  - Cardiac arrest [Fatal]
  - Apnoea [Fatal]
  - Intentional overdose [Fatal]
  - Unresponsive to stimuli [Fatal]

NARRATIVE: CASE EVENT DATE: 201603
